FAERS Safety Report 4921400-7 (Version None)
Quarter: 2006Q1

REPORT INFORMATION
  Report Type: 
  Country: None (occurrence: None)
  Receive Date: 20060224
  Receipt Date: 20051219
  Transmission Date: 20060701
  Serious: Yes (Other)
  Sender: FDA-Public Use
  Company Number: 2005UW19012

PATIENT
  Age: 70 Year
  Sex: Male
  Weight: 73.2 kg

DRUGS (1)
  1. CRESTOR [Suspect]
     Route: 048
     Dates: start: 20050330, end: 20051103

REACTIONS (1)
  - NEPHROTIC SYNDROME [None]
